FAERS Safety Report 22036458 (Version 2)
Quarter: 2023Q1

REPORT INFORMATION
  Report Type: Report from Study
  Country: CA (occurrence: CA)
  Receive Date: 20230225
  Receipt Date: 20230228
  Transmission Date: 20230418
  Serious: Yes (Hospitalization, Other)
  Sender: FDA-Public Use
  Company Number: CA-002147023-NVSC2023CA022376

PATIENT
  Age: 28 Year
  Sex: Male

DRUGS (2)
  1. HYRIMOZ [Suspect]
     Active Substance: ADALIMUMAB-ADAZ
     Indication: Crohn^s disease
     Dosage: 40 MG
     Route: 058
     Dates: start: 20220816
  2. HYRIMOZ [Suspect]
     Active Substance: ADALIMUMAB-ADAZ
     Dosage: 40 MG
     Route: 058

REACTIONS (3)
  - Upper respiratory tract infection [Unknown]
  - Nasopharyngitis [Unknown]
  - Cognitive disorder [Unknown]
